FAERS Safety Report 15837209 (Version 1)
Quarter: 2019Q1

REPORT INFORMATION
  Report Type: Spontaneous
  Country: US (occurrence: US)
  Receive Date: 20190117
  Receipt Date: 20190117
  Transmission Date: 20190417
  Serious: Yes (Other)
  Sender: FDA-Public Use
  Company Number: None

PATIENT
  Age: 48 Year
  Sex: Male
  Weight: 95.4 kg

DRUGS (8)
  1. CANABINOID OIL [Concomitant]
     Dates: start: 20150101, end: 20190117
  2. LEUKOVORIN [Suspect]
     Active Substance: LEUCOVORIN SODIUM
     Indication: NEURALGIA
     Dates: start: 20190111, end: 20190115
  3. METHOTREXATE. [Concomitant]
     Active Substance: METHOTREXATE
     Dates: start: 20150101, end: 20190117
  4. MAGNOLIA BARK [Concomitant]
     Dates: start: 20150101, end: 20190117
  5. PLAQUENIL [Concomitant]
     Active Substance: HYDROXYCHLOROQUINE SULFATE
     Dates: start: 20150101, end: 20190117
  6. GABAPENTIN. [Concomitant]
     Active Substance: GABAPENTIN
     Dates: start: 20150101, end: 20190117
  7. LONG VIDA TURMERIC [Concomitant]
     Dates: start: 20150101, end: 20190117
  8. LAVENDER ESSENTIAL OIL [Concomitant]
     Dates: start: 20150101, end: 20190117

REACTIONS (3)
  - Accidental overdose [None]
  - Major depression [None]
  - Anxiety disorder [None]

NARRATIVE: CASE EVENT DATE: 20190116
